FAERS Safety Report 8124562-6 (Version None)
Quarter: 2012Q1

REPORT INFORMATION
  Report Type: 
  Country: None (occurrence: None)
  Receive Date: 20120209
  Receipt Date: 20120201
  Transmission Date: 20120608
  Serious: Yes (Hospitalization, Other)
  Sender: FDA-Public Use
  Company Number: US-BAYER-2012-006878

PATIENT
  Age: 79 Year
  Sex: Female
  Weight: 76.4 kg

DRUGS (18)
  1. MDX-010 [Suspect]
     Indication: MALIGNANT MELANOMA
     Dosage: 10 MG/KG, Q3WK
     Route: 042
     Dates: start: 20111020, end: 20120104
  2. FAMOTIDINE [Concomitant]
  3. VALSARTAN [Concomitant]
  4. VERSED [Concomitant]
  5. CIPROFLOXACIN [Concomitant]
  6. LISINOPRIL [Concomitant]
  7. DIPHENHYDRAMINE HCL [Concomitant]
  8. JANUVIA [Concomitant]
  9. CLONIDINE [Concomitant]
  10. CEFTRIAXONE [Concomitant]
  11. HUMALOG [Concomitant]
     Indication: TYPE 2 DIABETES MELLITUS
     Dosage: SLIDING SCALE
  12. AZITHROMYCIN [Concomitant]
  13. SARGRAMOSTIM [Suspect]
     Indication: MALIGNANT MELANOMA
     Dosage: 125 ?G/M2, D1-14 Q21D
     Route: 058
     Dates: start: 20111020, end: 20120118
  14. ZOSYN [Concomitant]
  15. VANCOMYCIN [Concomitant]
  16. LANTUS [Concomitant]
  17. FENTANYL CITRATE [Concomitant]
  18. METOPROLOL [Concomitant]

REACTIONS (15)
  - FALL [None]
  - HYPOGLYCAEMIA [None]
  - RENAL FAILURE ACUTE [None]
  - ENDOCRINE DISORDER [None]
  - BLOOD THYROID STIMULATING HORMONE DECREASED [None]
  - UNRESPONSIVE TO STIMULI [None]
  - BLOOD GLUCOSE FLUCTUATION [None]
  - HYPONATRAEMIA [None]
  - DIARRHOEA [None]
  - FATIGUE [None]
  - ASTHENIA [None]
  - PRURITUS [None]
  - PNEUMONIA [None]
  - HYPOKALAEMIA [None]
  - SEPSIS [None]
